FAERS Safety Report 23240553 (Version 1)
Quarter: 2023Q4

REPORT INFORMATION
  Report Type: Spontaneous
  Country: US (occurrence: US)
  Receive Date: 20231129
  Receipt Date: 20231129
  Transmission Date: 20240109
  Serious: No
  Sender: FDA-Public Use
  Company Number: US-SA-SAC20231127000822

PATIENT
  Sex: Female

DRUGS (4)
  1. DUPIXENT [Suspect]
     Active Substance: DUPILUMAB
     Indication: Dermatitis atopic
     Dosage: 300 MG, QOW
     Route: 058
  2. CLOBETASOL PROPIONATE [Concomitant]
     Active Substance: CLOBETASOL PROPIONATE
     Dates: start: 20231031
  3. PREDNISONE [Concomitant]
     Active Substance: PREDNISONE
     Dates: start: 20231031
  4. ELIDEL [Concomitant]
     Active Substance: PIMECROLIMUS
     Dates: start: 20231031

REACTIONS (1)
  - Diarrhoea [Unknown]
